FAERS Safety Report 6618173-9 (Version None)
Quarter: 2010Q1

REPORT INFORMATION
  Report Type: 
  Country: None (occurrence: None)
  Receive Date: 20100308
  Receipt Date: 20100301
  Transmission Date: 20100710
  Serious: Yes (Hospitalization, Disabling)
  Sender: FDA-Public Use
  Company Number: RO-ROCHE-688619

PATIENT
  Sex: Female

DRUGS (2)
  1. PEGASYS [Suspect]
     Dosage: FREQUENCY REPORTED AS EVERY WEEK.
     Route: 058
     Dates: start: 20090224, end: 20100128
  2. COPEGUS [Suspect]
     Dosage: FREQUENCY REPORTED: EVERY DAY.
     Route: 048
     Dates: start: 20090224, end: 20100128

REACTIONS (1)
  - PERIODONTAL DISEASE [None]
